FAERS Safety Report 16114622 (Version 1)
Quarter: 2019Q1

REPORT INFORMATION
  Report Type: Spontaneous
  Country: NO (occurrence: NO)
  Receive Date: 20190325
  Receipt Date: 20190325
  Transmission Date: 20190418
  Serious: Yes (Hospitalization, Other)
  Sender: FDA-Public Use
  Company Number: NO-BAYER-2019-053962

PATIENT
  Age: 31 Year
  Sex: Female

DRUGS (1)
  1. LEVONORGESTREL IUS [UNKNOWN] [Suspect]
     Active Substance: LEVONORGESTREL
     Dosage: UNK
     Route: 015

REACTIONS (10)
  - Urinary tract infection [None]
  - Blood pressure increased [None]
  - Breast cancer [None]
  - Drug ineffective [None]
  - Fatigue [None]
  - Oral fungal infection [None]
  - Fatigue [None]
  - Malabsorption [None]
  - Headache [None]
  - Pregnancy with contraceptive device [None]

NARRATIVE: CASE EVENT DATE: 201610
